FAERS Safety Report 13768006 (Version 1)
Quarter: 2017Q3

REPORT INFORMATION
  Report Type: Report from Study
  Country: US (occurrence: US)
  Receive Date: 20170719
  Receipt Date: 20170719
  Transmission Date: 20171127
  Serious: Yes (Hospitalization, Other)
  Sender: FDA-Public Use
  Company Number: US-BIOGEN-2013BI098756

PATIENT
  Age: 52 Year
  Sex: Female

DRUGS (1)
  1. AVONEX [Suspect]
     Active Substance: INTERFERON BETA-1A
     Indication: MULTIPLE SCLEROSIS
     Route: 030
     Dates: start: 20050715, end: 20151016

REACTIONS (8)
  - Arthralgia [Unknown]
  - Injection site haemorrhage [Recovered/Resolved]
  - Haemorrhagic cyst [Unknown]
  - Mobility decreased [Not Recovered/Not Resolved]
  - Brain neoplasm [Unknown]
  - Post procedural complication [Not Recovered/Not Resolved]
  - Bone disorder [Not Recovered/Not Resolved]
  - Joint crepitation [Unknown]

NARRATIVE: CASE EVENT DATE: 2012
